FAERS Safety Report 22240675 (Version 3)
Quarter: 2023Q2

REPORT INFORMATION
  Report Type: Spontaneous
  Country: IN (occurrence: IN)
  Receive Date: 20230421
  Receipt Date: 20230607
  Transmission Date: 20230722
  Serious: Yes (Hospitalization, Other)
  Sender: FDA-Public Use
  Company Number: IN-PFIZER INC-2019184247

PATIENT
  Age: 48 Year
  Sex: Male

DRUGS (14)
  1. SUTENT [Suspect]
     Active Substance: SUNITINIB MALATE
     Indication: Metastatic renal cell carcinoma
     Dosage: 37.5 MG, DAILY FOR 2 WEEKS ON AND 1 WEEK OFF
     Route: 048
     Dates: start: 20141128
  2. SUTENT [Suspect]
     Active Substance: SUNITINIB MALATE
     Dosage: 37.5 MG, CYCLIC (ONCE A DAY FOR 4 WEEKS)
     Route: 048
     Dates: start: 20141203
  3. SUTENT [Suspect]
     Active Substance: SUNITINIB MALATE
     Dosage: 25 MG, CYCLIC (DAILY FOR 2 WEEKS ON, 1 WEEK OFF )
     Route: 048
  4. SUTENT [Suspect]
     Active Substance: SUNITINIB MALATE
     Dosage: 25 MG, DAILY
     Route: 048
  5. SUTENT [Suspect]
     Active Substance: SUNITINIB MALATE
     Dosage: 37.5 MG, 2 WEEKS ON, 1 WEEK OFF
     Route: 048
  6. SUTENT [Suspect]
     Active Substance: SUNITINIB MALATE
     Dosage: 37.5 MG, 4 WEEKS ON,  2 WEEKS OFF
     Route: 048
  7. SUTENT [Suspect]
     Active Substance: SUNITINIB MALATE
     Dosage: 25 MG, DAILY, 4WKS-2WKS OFF X 2 ILLEGIBLE (56DAY)
     Route: 048
  8. GLYCOMET [METFORMIN] [Concomitant]
     Dosage: 500 MG, DAILY
  9. LEVOTHYROXINE [Concomitant]
     Active Substance: LEVOTHYROXINE
     Dosage: 150 MG, DAILY
  10. LEVOTHYROXINE [Concomitant]
     Active Substance: LEVOTHYROXINE
     Dosage: 125 MG, DAILY (1 TAB/DAY)
  11. UPRISE D3 [Concomitant]
     Dosage: 1 TAB WEEKLY FOR 6 MONTHS
     Route: 048
     Dates: start: 20220818
  12. AMLODIPINE BESYLATE [Concomitant]
     Active Substance: AMLODIPINE BESYLATE
     Dosage: 5 MG, DAILY
     Route: 048
  13. AMLODIPINE BESYLATE [Concomitant]
     Active Substance: AMLODIPINE BESYLATE
     Dosage: 25 MG, 1X/DAY 14 DAYS ON 7 DAYS OFF
  14. AMLODIPINE BESYLATE [Concomitant]
     Active Substance: AMLODIPINE BESYLATE
     Dosage: 37.5 MG, 1X/DAY

REACTIONS (19)
  - Viral infection [Not Recovered/Not Resolved]
  - Palmar-plantar erythrodysaesthesia syndrome [Unknown]
  - Frequent bowel movements [Unknown]
  - Nausea [Unknown]
  - Vomiting [Unknown]
  - Oropharyngeal pain [Unknown]
  - Dysphemia [Unknown]
  - Rash [Unknown]
  - Pruritus [Unknown]
  - Blood thyroid stimulating hormone increased [Unknown]
  - Pyrexia [Unknown]
  - Skin lesion [Unknown]
  - Diarrhoea [Unknown]
  - COVID-19 [Unknown]
  - Osteolysis [Unknown]
  - Neoplasm progression [Unknown]
  - Glycosylated haemoglobin increased [Unknown]
  - Off label use [Unknown]
  - Product use issue [Unknown]

NARRATIVE: CASE EVENT DATE: 20230401
